FAERS Safety Report 10529132 (Version 1)
Quarter: 2014Q4

REPORT INFORMATION
  Report Type: Spontaneous
  Country: JP (occurrence: None)
  Receive Date: 20141003
  Receipt Date: 20141003
  Transmission Date: 20150528
  Serious: Yes (Life-Threatening)
  Sender: FDA-Public Use
  Company Number: FK201403834

PATIENT
  Age: 41 Year
  Sex: Female

DRUGS (5)
  1. LIDOCAINE. [Concomitant]
     Active Substance: LIDOCAINE
  2. BUPIVACAINE [Concomitant]
     Active Substance: BUPIVACAINE
  3. VOLUVEN [Suspect]
     Active Substance: HYDROXYETHYL STARCH 130/0.4
     Indication: FLUID REPLACEMENT
     Route: 041
  4. FENTANYL. [Concomitant]
     Active Substance: FENTANYL
  5. CEFMETAZOLE SODIUM [Concomitant]
     Active Substance: CEFMETAZOLE SODIUM

REACTIONS (7)
  - Nasal congestion [None]
  - Erythema [None]
  - Oxygen saturation decreased [None]
  - Eyelid oedema [None]
  - Anaphylactic shock [None]
  - Dyspnoea [None]
  - Caesarean section [None]
